FAERS Safety Report 6980344-X (Version None)
Quarter: 2010Q3

REPORT INFORMATION
  Report Type: 
  Country: None (occurrence: None)
  Receive Date: 20100909
  Receipt Date: 20100901
  Transmission Date: 20110219
  Serious: Yes (Other)
  Sender: FDA-Public Use
  Company Number: 2010SP037101

PATIENT
  Age: 68 Year
  Sex: Female

DRUGS (5)
  1. MIRTAZAPINE [Suspect]
     Indication: DEPRESSION
     Dosage: 15 MG; QD; PO
     Route: 048
     Dates: start: 20100519, end: 20100531
  2. ETHYL LOFLAZEPATE [Concomitant]
  3. LEVOMEPROMAZINE MALEATE [Concomitant]
  4. LITHIUM CARBONATE [Concomitant]
  5. ETIZOLAM [Concomitant]

REACTIONS (6)
  - ERYTHEMA [None]
  - ERYTHEMA MULTIFORME [None]
  - FEELING ABNORMAL [None]
  - MALAISE [None]
  - RESTLESSNESS [None]
  - TOXIC SKIN ERUPTION [None]
